FAERS Safety Report 5333601-7 (Version None)
Quarter: 2007Q2

REPORT INFORMATION
  Report Type: 
  Country: None (occurrence: None)
  Receive Date: 20070524
  Receipt Date: 20070517
  Transmission Date: 20071010
  Serious: Yes (Life-Threatening, Disabling)
  Sender: FDA-Public Use
  Company Number: JP-GENENTECH-238779

PATIENT
  Sex: Female
  Weight: 45 kg

DRUGS (18)
  1. RITUXIMAB [Suspect]
     Indication: SYSTEMIC LUPUS ERYTHEMATOSUS
     Dosage: 1000 MG, 1/WEEK
     Route: 042
     Dates: start: 20050317
  2. RITUXIMAB [Suspect]
     Dosage: 1000 MG, UNK
     Route: 042
     Dates: start: 20060614
  3. RITUXIMAB [Suspect]
     Dosage: 1000 MG, UNKNOWN
     Route: 042
     Dates: start: 20070110
  4. ACETAMINOPHEN [Concomitant]
     Indication: PREMEDICATION
     Dosage: 400 MG, UNK
     Route: 048
     Dates: start: 20070110
  5. POLARAMINE [Concomitant]
     Indication: PREMEDICATION
     Dosage: 2 MG, UNK
     Route: 048
     Dates: start: 20070110
  6. SOLU-MEDROL [Concomitant]
     Indication: PREMEDICATION
     Dosage: 125 MG, UNK
     Route: 042
     Dates: start: 20070110
  7. SAXIZON [Concomitant]
     Indication: PREMEDICATION
     Dosage: 1800 MG, UNK
     Route: 042
     Dates: start: 20070124
  8. NIZATIDINE [Concomitant]
     Indication: GASTRITIS
     Dosage: 300 MG, UNK
     Route: 048
  9. CALCIUM CHLORIDE [Concomitant]
     Indication: OSTEOPOROSIS
     Dosage: 600 MG, UNK
     Route: 048
  10. NEUER [Concomitant]
     Indication: GASTRITIS
     Dosage: 600 MG, UNK
     Route: 048
  11. LIPITOR [Concomitant]
     Indication: HYPERLIPIDAEMIA
     Dosage: 10 MG, UNK
     Route: 048
  12. ASPIRIN [Concomitant]
     Indication: ANTIPHOSPHOLIPID SYNDROME
     Dosage: 100 MG, UNK
     Route: 048
     Dates: start: 20060612
  13. SUCRALFATE [Concomitant]
     Indication: GASTRITIS
     Dosage: 3 MG, UNK
     Route: 048
     Dates: start: 20060628
  14. FERROMIA [Concomitant]
     Indication: IRON DEFICIENCY ANAEMIA
     Dosage: 50 MG, UNK
     Route: 048
     Dates: start: 20060709
  15. MIZORIBINE [Concomitant]
     Indication: SYSTEMIC LUPUS ERYTHEMATOSUS
     Route: 048
     Dates: start: 20060922
  16. WARFARIN SODIUM [Concomitant]
     Indication: ANTIPHOSPHOLIPID SYNDROME
     Dosage: 1 MG, UNK
     Route: 048
     Dates: start: 20061214
  17. WARFARIN SODIUM [Concomitant]
     Dosage: 0.5 MG, UNK
     Route: 048
     Dates: start: 20061214
  18. PREDNISOLONE [Concomitant]
     Indication: SYSTEMIC LUPUS ERYTHEMATOSUS
     Dosage: 30 MG, UNK
     Route: 048
     Dates: start: 20060701

REACTIONS (1)
  - MYELITIS TRANSVERSE [None]
